FAERS Safety Report 9294004 (Version 1)
Quarter: 2012Q4

REPORT INFORMATION
  Report Type: Spontaneous
  Country: US (occurrence: None)
  Receive Date: 20121217
  Receipt Date: 20121217
  Transmission Date: 20130627
  Serious: No
  Sender: FDA-Public Use
  Company Number: HRA-CDB20120294

PATIENT
  Sex: Female

DRUGS (1)
  1. ELLA(ELLAONE) (ULIPRISTAL ACETATE) [Suspect]

REACTIONS (3)
  - Menorrhagia [None]
  - Dysmenorrhoea [None]
  - Fatigue [None]
